FAERS Safety Report 5283537-5 (Version None)
Quarter: 2007Q1

REPORT INFORMATION
  Report Type: 
  Country: None (occurrence: None)
  Receive Date: 20061226
  Receipt Date: 20061106
  Transmission Date: 20070707
  Serious: No
  Sender: FDA-Public Use
  Company Number: 2006PV024678

PATIENT
  Age: 21 Year
  Sex: Female

DRUGS (3)
  1. SYMLIN [Suspect]
     Indication: DIABETES MELLITUS INSULIN-DEPENDENT
     Dosage: 15 MCG; SC
     Route: 058
  2. NOVOLOG PEN [Concomitant]
  3. LANTUS [Concomitant]

REACTIONS (2)
  - DIARRHOEA [None]
  - MEDICATION ERROR [None]
